FAERS Safety Report 4401685-6 (Version None)
Quarter: 2004Q3

REPORT INFORMATION
  Report Type: 
  Country: None (occurrence: None)
  Receive Date: 20040719
  Receipt Date: 20040708
  Transmission Date: 20050211
  Serious: Yes (Hospitalization)
  Sender: FDA-Public Use
  Company Number: FR-GLAXOSMITHKLINE-B0338330A

PATIENT
  Age: 78 Year
  Sex: Male

DRUGS (13)
  1. AUGMENTIN '125' [Suspect]
     Indication: PROPHYLAXIS
     Dosage: 3G PER DAY
     Route: 048
     Dates: end: 20040228
  2. PYOSTACINE [Suspect]
     Indication: ILL-DEFINED DISORDER
     Dosage: 4UNIT PER DAY
     Route: 048
     Dates: end: 20040310
  3. TAHOR [Suspect]
     Dosage: 1UNIT PER DAY
     Route: 048
     Dates: end: 20040310
  4. DOLIPRANE [Concomitant]
     Indication: ILL-DEFINED DISORDER
     Dosage: 6UNIT PER DAY
     Route: 048
     Dates: end: 20040310
  5. TRIATEC [Concomitant]
     Indication: ILL-DEFINED DISORDER
     Dosage: 2UNIT PER DAY
     Route: 048
     Dates: end: 20040310
  6. LASIX [Concomitant]
     Indication: ILL-DEFINED DISORDER
     Route: 065
  7. ASPIRIN [Concomitant]
     Indication: ILL-DEFINED DISORDER
     Route: 048
  8. BISOPROLOL FUMARATE [Concomitant]
     Indication: ILL-DEFINED DISORDER
     Route: 048
  9. VADILEX [Concomitant]
     Route: 065
  10. ADANCOR [Concomitant]
     Indication: ANGINA PECTORIS
     Route: 048
  11. LEXOMIL [Concomitant]
     Indication: ILL-DEFINED DISORDER
     Route: 048
  12. INEXIUM [Concomitant]
     Indication: ILL-DEFINED DISORDER
     Route: 048
  13. CORTANCYL [Concomitant]
     Indication: ILL-DEFINED DISORDER
     Route: 048

REACTIONS (10)
  - ABDOMINAL PAIN UPPER [None]
  - BILIRUBIN CONJUGATED INCREASED [None]
  - BLOOD BILIRUBIN INCREASED [None]
  - CHOLESTASIS [None]
  - CHROMATURIA [None]
  - CYTOLYTIC HEPATITIS [None]
  - FAECES PALE [None]
  - GAMMA-GLUTAMYLTRANSFERASE INCREASED [None]
  - HEPATIC ENZYME INCREASED [None]
  - JAUNDICE [None]
